FAERS Safety Report 12473549 (Version 1)
Quarter: 2016Q2

REPORT INFORMATION
  Report Type: Spontaneous
  Country: JP (occurrence: JP)
  Receive Date: 20160616
  Receipt Date: 20160616
  Transmission Date: 20160815
  Serious: Yes (Other)
  Sender: FDA-Public Use
  Company Number: PHJP1996JP000918

PATIENT
  Age: 17 Year
  Sex: Female

DRUGS (1)
  1. TEGRETOL [Suspect]
     Active Substance: CARBAMAZEPINE
     Indication: EPILEPSY
     Dosage: 150 MG, UNK
     Route: 048
     Dates: start: 19960520, end: 19960615

REACTIONS (3)
  - Rash [Recovered/Resolved]
  - Hepatic function abnormal [Recovered/Resolved]
  - Pyrexia [Recovered/Resolved]

NARRATIVE: CASE EVENT DATE: 19960614
